FAERS Safety Report 8644570 (Version 3)
Quarter: 2012Q4

REPORT INFORMATION
  Report Type: 
  Country: US (occurrence: US)
  Receive Date: 20120629
  Receipt Date: 20120920
  Transmission Date: 20130627
  Serious: Yes (Hospitalization)
  Sender: FDA-Public Use
  Company Number: US-ALLERGAN-1208690US

PATIENT
  Age: 70 Year
  Sex: Male
  Weight: 62.59 kg

DRUGS (2)
  1. BOTOX� [Suspect]
     Indication: ARM SPASTICITY
     Dosage: 800 UNITS, single
     Dates: start: 20100204, end: 20100204
  2. BOTOX� [Suspect]
     Indication: LEG SPASTICITY
     Dosage: UNK
     Dates: start: 20081030, end: 20081030

REACTIONS (2)
  - Intestinal obstruction [Recovered/Resolved]
  - Dysphagia [Recovered/Resolved]
